FAERS Safety Report 9773116 (Version 4)
Quarter: 2014Q1

REPORT INFORMATION
  Report Type: Spontaneous
  Country: JP (occurrence: JP)
  Receive Date: 20131219
  Receipt Date: 20140117
  Transmission Date: 20141002
  Serious: Yes (Other)
  Sender: FDA-Public Use
  Company Number: JP-B.I. PHARMACEUTICALS,INC./RIDGEFIELD-2013-BI-39429NB

PATIENT
  Age: 60 Year
  Sex: Male
  Weight: 84.2 kg

DRUGS (8)
  1. MICAMLO COMBINATION [Suspect]
     Indication: HYPERTENSION
     Dosage: 1 ANZ
     Route: 048
     Dates: start: 20130625
  2. LIVALO / PITAVASTATIN CALCIUM [Concomitant]
     Indication: HYPERCHOLESTEROLAEMIA
     Dosage: 2 MG
     Route: 048
     Dates: start: 20120313
  3. URSO / URSODEOXYCHOLIC ACID [Concomitant]
     Indication: HEPATIC STEATOSIS
     Dosage: 600 MG
     Route: 048
     Dates: start: 20111220
  4. GLYCYRON / MONOAMMONIUM GLYCYRRHIZINATE_GLYCINE_DL-METHIONINE COMBIN [Concomitant]
     Indication: HEPATIC STEATOSIS
     Dosage: 3 ANZ
     Route: 048
     Dates: start: 20110607
  5. NEXIUM / ESOMEPRAZOLE MAGNESIUM HYDRATE [Concomitant]
     Indication: GASTROOESOPHAGEAL REFLUX DISEASE
     Dosage: 10 MG
     Route: 048
     Dates: start: 20131119
  6. METHYCOBAL / MECOBALAMIN [Concomitant]
     Indication: NEUROPATHY PERIPHERAL
     Dosage: 1500 MCG
     Route: 048
     Dates: start: 20071106
  7. JUVELA N / TOCOPHEROL NICOTINATE [Concomitant]
     Indication: PAIN IN EXTREMITY
     Dosage: 300 MG
     Route: 048
     Dates: start: 20071106
  8. OPALMON / LIMAPROST ALFADEX [Concomitant]
     Indication: PAIN IN EXTREMITY
     Dosage: 15 MCG
     Route: 048
     Dates: start: 20071211

REACTIONS (1)
  - Myelodysplastic syndrome [Unknown]
